FAERS Safety Report 4787109-8 (Version None)
Quarter: 2005Q4

REPORT INFORMATION
  Report Type: 
  Country: None (occurrence: None)
  Receive Date: 20051004
  Receipt Date: 20050921
  Transmission Date: 20060501
  Serious: Yes (Other)
  Sender: FDA-Public Use
  Company Number: US-GLAXOSMITHKLINE-A0575158A

PATIENT
  Age: 82 Year
  Sex: Female
  Weight: 59 kg

DRUGS (3)
  1. ECOTRIN ADULT STRENGTH LOW 81MG [Suspect]
     Indication: PROPHYLAXIS
     Route: 048
     Dates: start: 19950101, end: 20050801
  2. ACTONEL [Concomitant]
     Indication: OSTEOPOROSIS
  3. TYLENOL (CAPLET) [Concomitant]
     Indication: PAIN

REACTIONS (4)
  - HAEMORRHAGE [None]
  - JOINT SWELLING [None]
  - SKIN ATROPHY [None]
  - SKIN DISORDER [None]
